FAERS Safety Report 5066004-3 (Version None)
Quarter: 2006Q3

REPORT INFORMATION
  Report Type: 
  Country: None (occurrence: None)
  Receive Date: 20060731
  Receipt Date: 20060615
  Transmission Date: 20061208
  Serious: Yes (Other)
  Sender: FDA-Public Use
  Company Number: IT-ABBOTT-06P-083-0336127-00

PATIENT
  Sex: Female

DRUGS (4)
  1. DEPAKENE [Suspect]
     Indication: AFFECTIVE DISORDER
     Route: 048
     Dates: start: 20060101, end: 20060523
  2. DEPAKENE [Suspect]
     Indication: DEPRESSION
  3. ALPRAZOLAM [Concomitant]
     Indication: DEPRESSION
     Route: 048
  4. ENTACT [Concomitant]
     Indication: DEPRESSION
     Route: 048

REACTIONS (1)
  - NEPHROGENIC DIABETES INSIPIDUS [None]
